FAERS Safety Report 4385340-7 (Version None)
Quarter: 2004Q2

REPORT INFORMATION
  Report Type: 
  Country: None (occurrence: None)
  Receive Date: 20040628
  Receipt Date: 20040618
  Transmission Date: 20050107
  Serious: Yes (Death)
  Sender: FDA-Public Use
  Company Number: PHBS2004JP08068

PATIENT
  Age: 36 Year
  Sex: Male

DRUGS (1)
  1. RITALIN [Suspect]
     Indication: DEPRESSION
     Route: 048

REACTIONS (3)
  - DEATH [None]
  - DRUG WITHDRAWAL SYNDROME [None]
  - JOINT STIFFNESS [None]
